FAERS Safety Report 5549847-9 (Version None)
Quarter: 2007Q4

REPORT INFORMATION
  Report Type: 
  Country: None (occurrence: None)
  Receive Date: 20071207
  Receipt Date: 20071207
  Transmission Date: 20080405
  Serious: Yes (Death)
  Sender: FDA-Public Use
  Company Number: None

PATIENT
  Age: 22 Year
  Sex: Male
  Weight: 77.1115 kg

DRUGS (1)
  1. METHADONE HCL [Suspect]
     Indication: NERVOUSNESS
     Dosage: 20 TO 30 MGS   ONCE
     Dates: start: 20061209, end: 20061209

REACTIONS (3)
  - GASTRIC HAEMORRHAGE [None]
  - INTRACARDIAC THROMBUS [None]
  - PULMONARY OEDEMA [None]
